FAERS Safety Report 12615125 (Version 1)
Quarter: 2016Q3

REPORT INFORMATION
  Report Type: Spontaneous
  Country: US (occurrence: US)
  Receive Date: 20160802
  Receipt Date: 20160802
  Transmission Date: 20161109
  Serious: No
  Sender: FDA-Public Use
  Company Number: US-PERRIGO-16US016858

PATIENT
  Age: 47 Year
  Sex: Male
  Weight: 74.83 kg

DRUGS (3)
  1. MINOXIDIL. [Suspect]
     Active Substance: MINOXIDIL
     Indication: ALOPECIA
     Dosage: 1 ML, BID
     Route: 061
     Dates: start: 20160516, end: 20160529
  2. VITAMINS NOS [Concomitant]
     Active Substance: VITAMINS
     Indication: SUPPLEMENTATION THERAPY
     Dosage: UNK
     Route: 065
  3. MINOXIDIL. [Suspect]
     Active Substance: MINOXIDIL
     Dosage: 1 ML, QD AT BEDTIME
     Route: 061
     Dates: start: 20160530, end: 20160601

REACTIONS (5)
  - Inappropriate schedule of drug administration [Recovered/Resolved]
  - Application site erythema [Recovered/Resolved]
  - Application site pain [Recovered/Resolved]
  - Dandruff [Recovered/Resolved]
  - Application site pruritus [Recovered/Resolved]

NARRATIVE: CASE EVENT DATE: 20160523
